FAERS Safety Report 7563091-5 (Version None)
Quarter: 2011Q2

REPORT INFORMATION
  Report Type: 
  Country: None (occurrence: None)
  Receive Date: 20110615
  Receipt Date: 20110603
  Transmission Date: 20111010
  Serious: Yes (Death, Hospitalization)
  Sender: FDA-Public Use
  Company Number: UTC-007632

PATIENT
  Age: 76 Year
  Sex: Female

DRUGS (3)
  1. TYVASO [Suspect]
     Indication: PULMONARY ARTERIAL HYPERTENSION
     Dosage: 216 MCG (54 MCG,4 IN 1 D),INHALATION
     Route: 055
     Dates: start: 20090921
  2. DIURETICS (DIURETICS) [Concomitant]
  3. TRACLEER [Concomitant]

REACTIONS (1)
  - LOSS OF CONSCIOUSNESS [None]
